FAERS Safety Report 5036503-9 (Version None)
Quarter: 2006Q2

REPORT INFORMATION
  Report Type: 
  Country: None (occurrence: None)
  Receive Date: 20060613
  Receipt Date: 20050801
  Transmission Date: 20061013
  Serious: Yes (Death)
  Sender: FDA-Public Use
  Company Number: US-JNJFOC-20050607022

PATIENT
  Age: 47 Year
  Sex: Male

DRUGS (1)
  1. HALDOL DECANOATE (HALOPERIDOL DECANOATE) INJECTION [Suspect]
     Indication: DRUG USE FOR UNKNOWN INDICATION
     Dosage: 300 MG, 1 IN 1 MONTH, INTRA-MUSCULAR
     Route: 030
     Dates: start: 20030801

REACTIONS (1)
  - SUDDEN DEATH [None]
